FAERS Safety Report 10240055 (Version 1)
Quarter: 2014Q2

REPORT INFORMATION
  Report Type: Spontaneous
  Country: US (occurrence: US)
  Receive Date: 20140617
  Receipt Date: 20140617
  Transmission Date: 20141212
  Serious: No
  Sender: FDA-Public Use
  Company Number: 2014SP001371

PATIENT
  Sex: Female

DRUGS (15)
  1. DOXYCYCLINE [Suspect]
     Indication: PRODUCT USED FOR UNKNOWN INDICATION
  2. TOBRAMYCIN [Suspect]
     Indication: PRODUCT USED FOR UNKNOWN INDICATION
  3. ATORVASTATIN CALCIUM [Suspect]
     Indication: PRODUCT USED FOR UNKNOWN INDICATION
  4. PRAMIPEXOLE DIHYDROCHLORIDE [Suspect]
     Indication: PRODUCT USED FOR UNKNOWN INDICATION
  5. SERETIDE [Concomitant]
  6. SALBUTAMOL SULFATE [Concomitant]
  7. PREGABALIN [Concomitant]
     Route: 048
  8. OMEGA-3-ACID ETHYL ESTER [Concomitant]
  9. ESOMEPRAZOLE SODIUM [Concomitant]
  10. METOPROLOL SUCCINATE [Concomitant]
  11. ROPINIROLE HYDROCHLORIDE [Concomitant]
  12. THEOPHYLLINE [Concomitant]
  13. DULOXETINE HYDROCHLORIDE [Concomitant]
  14. FLUTICASONE PROPIONATE [Concomitant]
  15. MELOXICAM [Concomitant]

REACTIONS (1)
  - Drug hypersensitivity [Unknown]
